FAERS Safety Report 5613661-6 (Version None)
Quarter: 2008Q1

REPORT INFORMATION
  Report Type: 
  Country: None (occurrence: None)
  Receive Date: 20080205
  Receipt Date: 20080121
  Transmission Date: 20080703
  Serious: Yes (Death)
  Sender: FDA-Public Use
  Company Number: US-BAUSCH-2007BL004658

PATIENT
  Age: 46 Year
  Sex: Female
  Weight: 47 kg

DRUGS (5)
  1. ALBUTEROL SULFATE [Suspect]
     Indication: ASTHMA
     Route: 049
     Dates: end: 20071209
  2. ALBUTEROL SULFATE [Suspect]
     Route: 049
     Dates: end: 20071209
  3. PROVENTIL GENTLEHALER [Suspect]
     Indication: ASTHMA
     Route: 049
     Dates: start: 20050101, end: 20071209
  4. XANAX /USA/ [Concomitant]
     Indication: ANXIETY
  5. LORTAB [Concomitant]
     Indication: PLEURITIC PAIN

REACTIONS (1)
  - ASTHMA [None]
